FAERS Safety Report 9555728 (Version 2)
Quarter: 2013Q4

REPORT INFORMATION
  Report Type: Report from Study
  Country: US (occurrence: US)
  Receive Date: 20130926
  Receipt Date: 20131008
  Transmission Date: 20140711
  Serious: Yes (Hospitalization)
  Sender: FDA-Public Use
  Company Number: PHEH2013US020075

PATIENT
  Age: 30 Year
  Sex: Female

DRUGS (2)
  1. EXTAVIA [Suspect]
     Indication: MULTIPLE SCLEROSIS
     Dosage: 25 MG, QOD
     Route: 058
     Dates: start: 20130620
  2. AMITRIPTYLINE [Concomitant]
     Indication: SLEEP DISORDER
     Dosage: 25 MG, QOD
     Route: 048
     Dates: start: 20130801

REACTIONS (9)
  - Optic neuritis [Recovered/Resolved]
  - Balance disorder [Unknown]
  - Pyrexia [Recovered/Resolved]
  - Acute sinusitis [Unknown]
  - Vision blurred [Unknown]
  - Photophobia [Unknown]
  - Eye pain [Unknown]
  - Nausea [Unknown]
  - Headache [Unknown]
